FAERS Safety Report 6267370-3 (Version None)
Quarter: 2009Q3

REPORT INFORMATION
  Report Type: 
  Country: None (occurrence: None)
  Receive Date: 20090710
  Receipt Date: 20090629
  Transmission Date: 20100115
  Serious: Yes (Life-Threatening, Hospitalization, Other)
  Sender: FDA-Public Use
  Company Number: 2009AL004403

PATIENT
  Age: 65 Year
  Sex: Male

DRUGS (18)
  1. HYDROCORTISONE [Suspect]
     Indication: RENAL TRANSPLANT
     Dosage: 100 MG; QD; IV
     Route: 042
     Dates: start: 20040919
  2. CYCLOSPORINE [Concomitant]
  3. MYCOPHENOLIC ACID [Concomitant]
  4. EXTRANEAL [Concomitant]
  5. ATORVASTATIN CALCIUM [Concomitant]
  6. PREDNISOLONE [Concomitant]
  7. COTRIM [Concomitant]
  8. ACETYLSALICYLIC ACID [Concomitant]
  9. AMLODIPINE [Concomitant]
  10. TAZOCIN [Concomitant]
  11. DOXAZOSIN MESYLATE [Concomitant]
  12. FLUCONAZOLE [Concomitant]
  13. HEPARIN [Concomitant]
  14. IMIPENEM [Concomitant]
  15. INSULIN [Concomitant]
  16. LANSOPRAZOLE [Concomitant]
  17. METRONIDAZOLE [Concomitant]
  18. VANCOMYCIN [Concomitant]

REACTIONS (1)
  - NO ADVERSE EVENT [None]
